FAERS Safety Report 10922511 (Version 1)
Quarter: 2015Q1

REPORT INFORMATION
  Report Type: Spontaneous
  Country: US (occurrence: US)
  Receive Date: 20150317
  Receipt Date: 20150317
  Transmission Date: 20150721
  Serious: Yes (Hospitalization)
  Sender: FDA-Public Use
  Company Number: PHHY2015US029576

PATIENT
  Age: 72 Year
  Sex: Male

DRUGS (6)
  1. ALEVE [Interacting]
     Active Substance: NAPROXEN SODIUM
     Indication: MUSCLE SPASMS
     Dosage: 4 DF, QD
     Route: 065
  2. CIALIS [Concomitant]
     Active Substance: TADALAFIL
     Indication: PRODUCT USED FOR UNKNOWN INDICATION
     Dosage: 10 MG, UNK
     Route: 065
  3. ACETYLSALICYLIC ACID [Suspect]
     Active Substance: ASPIRIN
     Indication: MUSCLE SPASMS
     Dosage: 6 DF, QD
     Route: 065
  4. VISMODEGIB [Interacting]
     Active Substance: VISMODEGIB
     Indication: BASAL CELL CARCINOMA
     Route: 065
  5. NORVASC [Concomitant]
     Active Substance: AMLODIPINE BESYLATE
     Indication: PRODUCT USED FOR UNKNOWN INDICATION
     Dosage: 10 MG, QD
     Route: 065
  6. DIOVAN [Concomitant]
     Active Substance: VALSARTAN
     Indication: PRODUCT USED FOR UNKNOWN INDICATION
     Dosage: 320 MG, QD
     Route: 065

REACTIONS (17)
  - Gastrointestinal haemorrhage [Unknown]
  - Weight decreased [Unknown]
  - Ocular icterus [Unknown]
  - Haematochezia [Unknown]
  - Aphonia [Unknown]
  - Acute kidney injury [Unknown]
  - Decreased appetite [Recovered/Resolved]
  - Jaundice [Recovered/Resolved]
  - Abdominal tenderness [Unknown]
  - Acute hepatic failure [Unknown]
  - Hepatic steatosis [Unknown]
  - Melaena [Unknown]
  - Fatigue [Recovering/Resolving]
  - Chromaturia [Unknown]
  - Urine output decreased [Unknown]
  - Laryngitis [Unknown]
  - Drug interaction [Unknown]
